FAERS Safety Report 9387152 (Version 4)
Quarter: 2015Q4

REPORT INFORMATION
  Report Type: Report from Study
  Country: JP (occurrence: JP)
  Receive Date: 20130708
  Receipt Date: 20151211
  Transmission Date: 20160305
  Serious: Yes (Life-Threatening, Hospitalization, Disabling, Other)
  Sender: FDA-Public Use
  Company Number: JP-BAYER-200911624BYL

PATIENT
  Age: 65 Year
  Sex: Male
  Weight: 55 kg

DRUGS (12)
  1. NEXAVAR [Suspect]
     Active Substance: SORAFENIB
     Indication: RENAL CELL CARCINOMA
     Dosage: 200 MG, BID
     Route: 048
     Dates: start: 20091222, end: 20100606
  2. BAYASPIRIN [Concomitant]
     Active Substance: ASPIRIN
     Indication: LACUNAR INFARCTION
     Dosage: 100 MG, QD
     Route: 048
     Dates: start: 20101225
  3. EBRANTIL [Concomitant]
     Active Substance: URAPIDIL
     Indication: HYPERTENSION
     Dosage: 15 MG, QD
     Route: 048
     Dates: start: 20121009
  4. NEXAVAR [Suspect]
     Active Substance: SORAFENIB
     Indication: RENAL CELL CARCINOMA
     Dosage: 800 MG, QD
     Route: 048
     Dates: start: 200803, end: 20081114
  5. NEXAVAR [Suspect]
     Active Substance: SORAFENIB
     Indication: RENAL CELL CARCINOMA
     Dosage: 200 MG, BID
     Route: 048
     Dates: start: 20090915, end: 20091019
  6. NEXAVAR [Suspect]
     Active Substance: SORAFENIB
     Indication: RENAL CELL CARCINOMA
     Dosage: 200 MG, BID
     Route: 048
     Dates: start: 20100706, end: 20120305
  7. NEXAVAR [Suspect]
     Active Substance: SORAFENIB
     Indication: RENAL CELL CARCINOMA
     Dosage: 400 MG, BID
     Route: 048
     Dates: start: 20120306, end: 20130308
  8. NEXAVAR [Suspect]
     Active Substance: SORAFENIB
     Indication: RENAL CELL CARCINOMA
     Dosage: 600 MG, QD
     Route: 048
     Dates: start: 20081115, end: 20090914
  9. BLOPRESS [Concomitant]
     Active Substance: CANDESARTAN CILEXETIL
     Indication: HYPERTENSION
     Dosage: 8 MG, QD
     Route: 048
     Dates: start: 20121207
  10. LIVALO [Concomitant]
     Active Substance: PITAVASTATIN CALCIUM
     Indication: DYSLIPIDAEMIA
     Dosage: 2 G, QD
     Route: 048
     Dates: start: 20101226
  11. KREMEZIN [Concomitant]
     Active Substance: ACTIVATED CHARCOAL
     Indication: CHRONIC KIDNEY DISEASE
     Dosage: 2 G, TID
     Route: 048
     Dates: start: 20101109
  12. NEXAVAR [Suspect]
     Active Substance: SORAFENIB
     Indication: RENAL CELL CARCINOMA
     Dosage: 400 MG, BID
     Route: 048
     Dates: start: 20091020, end: 20091221

REACTIONS (8)
  - Cerebral infarction [None]
  - Cholecystitis acute [Recovered/Resolved]
  - Hepatic function abnormal [Recovered/Resolved]
  - Hypertension [Recovering/Resolving]
  - Acute myocardial infarction [Recovered/Resolved with Sequelae]
  - Diarrhoea [Recovering/Resolving]
  - Pityriasis rosea [Recovered/Resolved]
  - Palmar-plantar erythrodysaesthesia syndrome [Recovering/Resolving]

NARRATIVE: CASE EVENT DATE: 20080617
